FAERS Safety Report 24703031 (Version 1)
Quarter: 2024Q4

REPORT INFORMATION
  Report Type: Spontaneous
  Country: GB (occurrence: GB)
  Receive Date: 20241205
  Receipt Date: 20241205
  Transmission Date: 20250115
  Serious: Yes (Death, Other)
  Sender: PFIZER
  Company Number: None

PATIENT
  Age: 61 Year
  Sex: Female
  Weight: 58 kg

DRUGS (1)
  1. METHOTREXATE SODIUM [Suspect]
     Active Substance: METHOTREXATE SODIUM
     Indication: Rheumatoid arthritis
     Dosage: 10 MG, WEEKLY
     Dates: start: 20190403

REACTIONS (9)
  - Pneumonia [Fatal]
  - Toxicity to various agents [Fatal]
  - Immune system disorder [Fatal]
  - White blood cell count decreased [Not Recovered/Not Resolved]
  - Tonic convulsion [Not Recovered/Not Resolved]
  - Depression [Not Recovered/Not Resolved]
  - Contusion [Not Recovered/Not Resolved]
  - Alopecia [Not Recovered/Not Resolved]
  - Weight decreased [Not Recovered/Not Resolved]

NARRATIVE: CASE EVENT DATE: 20200305
